FAERS Safety Report 13880825 (Version 2)
Quarter: 2017Q3

REPORT INFORMATION
  Report Type: Spontaneous
  Country: JP (occurrence: JP)
  Receive Date: 20170818
  Receipt Date: 20170911
  Transmission Date: 20171127
  Serious: Yes (Hospitalization, Disabling, Other)
  Sender: FDA-Public Use
  Company Number: JP-SA-2017SA150568

PATIENT
  Age: 28 Year
  Sex: Female

DRUGS (2)
  1. FAMOTIDINE D [Concomitant]
     Active Substance: FAMOTIDINE
  2. LEVOCETIRIZINE [Suspect]
     Active Substance: LEVOCETIRIZINE
     Indication: URTICARIA CHRONIC
     Route: 048
     Dates: start: 20170128, end: 20170623

REACTIONS (4)
  - Fulminant type 1 diabetes mellitus [Not Recovered/Not Resolved]
  - Pancreatitis acute [Recovered/Resolved with Sequelae]
  - Diabetes mellitus inadequate control [Unknown]
  - Abdominal pain upper [Unknown]
